FAERS Safety Report 8010715-4 (Version None)
Quarter: 2011Q4

REPORT INFORMATION
  Report Type: 
  Country: None (occurrence: None)
  Receive Date: 20111228
  Receipt Date: 20111013
  Transmission Date: 20120403
  Serious: No
  Sender: FDA-Public Use
  Company Number: US-BAYER-2011-102414

PATIENT
  Age: 60 Year
  Sex: Female
  Weight: 56.689 kg

DRUGS (2)
  1. CITRACAL MAXIMUM [Suspect]
     Dosage: 2 DF, BID
     Route: 048
     Dates: start: 20110701, end: 20111011
  2. CIPROFLOXACIN [Suspect]
     Dosage: UNK
     Dates: start: 20110101, end: 20110101

REACTIONS (1)
  - URTICARIA [None]
